FAERS Safety Report 8595980 (Version 2)
Quarter: 2013Q3

REPORT INFORMATION
  Report Type: Spontaneous
  Country: US (occurrence: US)
  Receive Date: 20120605
  Receipt Date: 20130920
  Transmission Date: 20140515
  Serious: Yes (Hospitalization, Disabling, Other)
  Sender: FDA-Public Use
  Company Number: US-ASTRAZENECA-2012SE35557

PATIENT
  Age: 36 Year
  Sex: Female

DRUGS (21)
  1. NEXIUM [Suspect]
     Route: 048
  2. NEXIUM [Suspect]
     Route: 048
     Dates: start: 20060105
  3. NEXIUM [Suspect]
     Route: 048
     Dates: start: 20120206
  4. PREVACID [Concomitant]
     Indication: ULCER
     Dates: start: 2007
  5. LYRICA [Concomitant]
     Indication: CONVULSION
  6. TOPAMAX [Concomitant]
     Indication: CONVULSION
  7. AGGRENOX [Concomitant]
     Indication: THROMBOSIS
  8. SINGULAIR [Concomitant]
     Indication: SINUS DISORDER
     Dates: start: 20120206
  9. MEPERIDINE/PROMETHAZINE [Concomitant]
     Dates: start: 20060109
  10. VERAPAMIL [Concomitant]
     Dates: start: 20060109
  11. LEVOTHYROXINE [Concomitant]
     Dates: start: 20120206
  12. IBUPROFEN [Concomitant]
     Dates: start: 20120216
  13. HYDROXYZINE HCL [Concomitant]
     Dates: start: 20060109
  14. TIZANIDINE HCL [Concomitant]
     Dates: start: 20120216
  15. DIAZEPAM [Concomitant]
     Dates: start: 20060105
  16. PAXIL CR [Concomitant]
     Dates: start: 20060105
  17. AMITRIPTYLINE HCL [Concomitant]
     Dates: start: 20060105
  18. ARTHROTEC [Concomitant]
     Dates: start: 20060105
  19. HYDROCORTISONE [Concomitant]
     Dates: start: 20060109
  20. CYCLOBENZAPRINE [Concomitant]
     Dates: start: 20060118
  21. FUROSEMIDE [Concomitant]
     Dates: start: 20060217

REACTIONS (15)
  - Musculoskeletal discomfort [Unknown]
  - Arthritis infective [Unknown]
  - Haemorrhage [Unknown]
  - Osteonecrosis [Unknown]
  - Osteoporosis [Unknown]
  - Bone loss [Unknown]
  - Foot fracture [Unknown]
  - Ankle fracture [Unknown]
  - Angina pectoris [Unknown]
  - Arthritis [Unknown]
  - Cataract [Unknown]
  - Hypothyroidism [Unknown]
  - Vitamin D deficiency [Unknown]
  - Osteopenia [Unknown]
  - Depression [Unknown]
